FAERS Safety Report 4365274-4 (Version None)
Quarter: 2004Q2

REPORT INFORMATION
  Report Type: 
  Country: None (occurrence: None)
  Receive Date: 20040521
  Receipt Date: 20040423
  Transmission Date: 20050107
  Serious: Yes (Hospitalization)
  Sender: FDA-Public Use
  Company Number: E129534

PATIENT
  Age: 73 Year
  Sex: Female

DRUGS (8)
  1. OXALIPLATIN 85-MG/M2 [Suspect]
     Indication: COLORECTAL CANCER
     Dosage: 85 MG/M2 Q2W
     Route: 042
     Dates: start: 20011204, end: 20011204
  2. FLUOROURACIL [Suspect]
     Dosage: 2000MG/M2 (400 MG/M2 BOLUS THEN 600 MG/M2 22 HOUR CONTINUOUS ON D1 AND D2 Q2W)
     Route: 042
     Dates: start: 20011204, end: 20011206
  3. LEUCOVORIN CALCIUM [Suspect]
     Dosage: 200 MG/M2 IN 2 HOURS INTRAVENOUS INFUSION, D1 AND D2, Q2W
     Route: 042
     Dates: start: 20011204, end: 20011205
  4. ASPIRIN [Concomitant]
  5. PREDNISOLONE [Concomitant]
  6. ATENOLOL [Concomitant]
  7. DOXAZOSIN [Concomitant]
  8. DIHYDROCODEINE [Concomitant]

REACTIONS (6)
  - CONFUSIONAL STATE [None]
  - DEHYDRATION [None]
  - DRUG TOXICITY [None]
  - NEUTROPENIC INFECTION [None]
  - PLATELET COUNT DECREASED [None]
  - VOMITING [None]
